FAERS Safety Report 17896632 (Version 3)
Quarter: 2020Q3

REPORT INFORMATION
  Report Type: Report from Study
  Country: DE (occurrence: DE)
  Receive Date: 20200615
  Receipt Date: 20200721
  Transmission Date: 20201103
  Serious: Yes (Hospitalization)
  Sender: FDA-Public Use
  Company Number: DE-BAXTER-2020BAX012331

PATIENT
  Age: 65 Year
  Sex: Female

DRUGS (3)
  1. DOXIL [Suspect]
     Active Substance: DOXORUBICIN HYDROCHLORIDE
     Indication: PLASMA CELL MYELOMA
     Dosage: ALSO REPORTED AS 29?MAY?2020. DATE OF THE LAST DOSAGE BEFORE EVENT ONSET WAS 29?MAY?2020
     Route: 065
     Dates: start: 20200528, end: 20200618
  2. VELCADE [Suspect]
     Active Substance: BORTEZOMIB
     Indication: PLASMA CELL MYELOMA
     Dosage: TREATMENT LINE? 1?DATE OF THE LAST DOSAGE BEFORE EVENT ONSET WAS 08?JUN?2020
     Route: 065
     Dates: start: 20200529
  3. THALIDOMIDE [Suspect]
     Active Substance: THALIDOMIDE
     Indication: PLASMA CELL MYELOMA
     Dosage: DATE OF LAST DOSE BEFORE EVENT 09?JUN?2020
     Route: 065
     Dates: end: 20200609

REACTIONS (2)
  - Discomfort [Recovered/Resolved]
  - Fatigue [Recovered/Resolved]

NARRATIVE: CASE EVENT DATE: 20200608
